FAERS Safety Report 6914597-0 (Version None)
Quarter: 2010Q3

REPORT INFORMATION
  Report Type: 
  Country: None (occurrence: None)
  Receive Date: 20100809
  Receipt Date: 20100803
  Transmission Date: 20110219
  Serious: Yes (Hospitalization)
  Sender: FDA-Public Use
  Company Number: US-SHIRE-ALL1-2010-04134

PATIENT

DRUGS (13)
  1. FOSRENOL [Suspect]
     Indication: HYPERPHOSPHATAEMIA
     Dosage: UNK MG, UNKNOWN
     Route: 048
     Dates: start: 20100401, end: 20100101
  2. FOSRENOL [Suspect]
     Indication: NEPHROPATHY
     Dosage: 500 MG, OTHER (3 TABS WITH MEALS, 2 TABS WITH SNACKS AND 1 TAB WITH DRINKS)
     Route: 048
     Dates: start: 20100101
  3. VITAGEN [Concomitant]
     Indication: HIV INFECTION
     Dosage: 300 MG, 1X/DAY:QD
     Route: 048
     Dates: start: 20100501
  4. AMLODIPINE [Concomitant]
     Indication: HYPERTENSION
     Dosage: 10 MG, 1X/DAY:QD
     Route: 048
     Dates: start: 20100401
  5. DAPSONE [Concomitant]
     Indication: ANTIBIOTIC THERAPY
     Dosage: 100 MG, 1X/DAY:QD
     Route: 048
     Dates: start: 20100401
  6. EPIVIR [Concomitant]
     Indication: HIV INFECTION
     Dosage: 150 MG, 1X/DAY:QD
     Route: 048
     Dates: start: 20100401
  7. LOPRESSOR [Concomitant]
     Indication: HYPERTENSION
     Dosage: 50 MG, 2X/DAY:BID
     Route: 048
     Dates: start: 20100401
  8. RENAL CAP [Concomitant]
     Indication: NEPHROPATHY
     Dosage: UNK MG, 1X/DAY:QD
     Route: 048
     Dates: start: 20100401
  9. NORVIR [Concomitant]
     Indication: HIV INFECTION
     Dosage: 100 MG, 1X/DAY:QD
     Route: 048
     Dates: start: 20100401
  10. PREZISTA [Concomitant]
     Indication: HIV INFECTION
     Dosage: 400 MG, 1X/DAY:QD (TWO 400 MG. TABLETS)
     Route: 048
     Dates: start: 20100401
  11. EMTRIVA [Concomitant]
     Indication: HIV INFECTION
     Dosage: 200 MG, 1X/DAY:QD
     Route: 048
     Dates: start: 20100401
  12. HYDROCODONE [Concomitant]
     Indication: PAIN
     Dosage: UNK MG, AS REQ'D (5/325MG. TAB THREE TIMES DAILY PRN)
     Route: 048
     Dates: start: 20100101
  13. TYLENOL W/ CODEINE NO. 3 [Concomitant]
     Indication: PAIN
     Dosage: UNK MG, AS REQ'D (THREE TIMES DAILY PRN)
     Route: 048
     Dates: start: 20100101

REACTIONS (2)
  - COSTOCHONDRITIS [None]
  - DRUG INEFFECTIVE [None]
